FAERS Safety Report 9558393 (Version 2)
Quarter: 2013Q4

REPORT INFORMATION
  Report Type: Spontaneous
  Country: US (occurrence: US)
  Receive Date: 20130926
  Receipt Date: 20131104
  Transmission Date: 20140711
  Serious: Yes (Hospitalization)
  Sender: FDA-Public Use
  Company Number: US-GILEAD-2013-0084141

PATIENT
  Sex: Female

DRUGS (5)
  1. LETAIRIS [Suspect]
     Indication: PULMONARY HYPERTENSION
     Dosage: 5 MG, QD
     Route: 048
     Dates: start: 20090202
  2. LETAIRIS [Suspect]
     Indication: CONGENITAL ANOMALY
  3. COUMADIN                           /00014802/ [Concomitant]
  4. REVATIO [Concomitant]
  5. VENTAVIS [Concomitant]

REACTIONS (1)
  - Coagulopathy [Recovered/Resolved]
